FAERS Safety Report 24721456 (Version 6)
Quarter: 2025Q3

REPORT INFORMATION
  Report Type: Report from Study
  Country: US (occurrence: US)
  Receive Date: 20241211
  Receipt Date: 20250915
  Transmission Date: 20251021
  Serious: Yes (Other)
  Sender: ALEXION PHARMACEUTICALS
  Company Number: US-AstraZeneca-CH-00760189A

PATIENT
  Sex: Male

DRUGS (29)
  1. SYMBICORT [Suspect]
     Active Substance: BUDESONIDE\FORMOTEROL FUMARATE DIHYDRATE
     Dosage: 160 MILLIGRAM, BID
     Route: 065
     Dates: start: 2019, end: 202403
  2. FLUMIST [Suspect]
     Active Substance: INFLUENZA A VIRUS A/CALIFORNIA/7/2009 (H1N1) LIVE(ATTENUATED) ANTIGEN\INFLUENZA A VIRUS A/PERTH/16/2
     Route: 065
  3. TEZEPELUMAB [Suspect]
     Active Substance: TEZEPELUMAB
     Indication: Asthma
     Dosage: 210 MILLIGRAM, Q4W
     Dates: start: 202407
  4. TEZEPELUMAB [Suspect]
     Active Substance: TEZEPELUMAB
  5. AIRSUPRA [Suspect]
     Active Substance: ALBUTEROL SULFATE\BUDESONIDE
  6. ALBUTEROL [Concomitant]
     Active Substance: ALBUTEROL
     Indication: Dyspnoea
     Route: 065
  7. ALBUTEROL [Concomitant]
     Active Substance: ALBUTEROL
     Indication: Chest discomfort
  8. ALBUTEROL [Concomitant]
     Active Substance: ALBUTEROL
     Indication: Wheezing
  9. ALBUTEROL SULFATE [Concomitant]
     Active Substance: ALBUTEROL SULFATE
     Route: 065
  10. AZULFIDINE [Concomitant]
     Active Substance: SULFASALAZINE
     Dosage: 4 DOSAGE FORM, QD
  11. BENICAR [Concomitant]
     Active Substance: OLMESARTAN MEDOXOMIL
     Dosage: 1 DOSAGE FORM, EVERY MORNING
     Dates: start: 20240709
  12. CIPRO [Concomitant]
     Active Substance: CIPROFLOXACIN HYDROCHLORIDE
     Dosage: 1 DOSAGE FORM, Q12H
     Dates: start: 20240909
  13. DOXYCYCLINE [Concomitant]
     Active Substance: DOXYCYCLINE
     Dosage: 100 MILLIGRAM, BID
     Route: 065
  14. FOLVITE [Concomitant]
     Active Substance: FOLIC ACID
     Dosage: 1 DOSAGE FORM, EVERY MORNING
     Dates: start: 20121202
  15. FLONASE [Concomitant]
     Active Substance: FLUTICASONE PROPIONATE
  16. KEVZARA [Concomitant]
     Active Substance: SARILUMAB
     Route: 065
  17. LONITEN [Concomitant]
     Active Substance: MINOXIDIL
     Dosage: 4 DOSAGE FORM, QD
     Dates: start: 20240510
  18. MOBIC [Concomitant]
     Active Substance: MELOXICAM
     Indication: Rheumatoid arthritis
     Dosage: 1 DOSAGE FORM, EVERY MORNING
  19. PERCOCET [Concomitant]
     Active Substance: ACETAMINOPHEN\OXYCODONE HYDROCHLORIDE
     Dosage: 1 DOSAGE FORM, Q6H
  20. PREDNISONE [Concomitant]
     Active Substance: PREDNISONE
     Dosage: 20 MILLIGRAM, BID
     Dates: start: 202403, end: 202407
  21. PREDNISONE [Concomitant]
     Active Substance: PREDNISONE
     Dosage: 20 MILLIGRAM, QD
     Dates: start: 202406, end: 202406
  22. PREDNISONE [Concomitant]
     Active Substance: PREDNISONE
     Dosage: 10 MILLIGRAM, QD
     Dates: start: 202406, end: 202406
  23. PREDNISONE [Concomitant]
     Active Substance: PREDNISONE
  24. PREDNISONE [Concomitant]
     Active Substance: PREDNISONE
  25. SARILUMAB [Concomitant]
     Active Substance: SARILUMAB
     Dosage: 150 MILLIGRAM, Q2W
     Route: 065
  26. SINGULAIR [Concomitant]
     Active Substance: MONTELUKAST SODIUM
     Dosage: 1 DOSAGE FORM, QHS
     Dates: start: 20241031
  27. TOPROL XL [Concomitant]
     Active Substance: METOPROLOL SUCCINATE
     Dosage: 1 DOSAGE FORM, QD
     Dates: start: 20170530
  28. TRELEGY ELLIPTA [Concomitant]
     Active Substance: FLUTICASONE FUROATE\UMECLIDINIUM BROMIDE\VILANTEROL TRIFENATATE
  29. XOPENEX [Concomitant]
     Active Substance: LEVALBUTEROL HYDROCHLORIDE
     Route: 065

REACTIONS (20)
  - Prostate cancer [Unknown]
  - Weight decreased [Unknown]
  - Dyspnoea [Unknown]
  - Chest discomfort [Unknown]
  - Cough [Unknown]
  - Wheezing [Unknown]
  - Mobility decreased [Unknown]
  - Dyspnoea exertional [Unknown]
  - Obesity [Unknown]
  - Nasal congestion [Unknown]
  - Limb injury [Unknown]
  - Obstructive airways disorder [Unknown]
  - Total lung capacity abnormal [Recovering/Resolving]
  - Arthritis [Unknown]
  - Rhinitis [Unknown]
  - Productive cough [Unknown]
  - FEV1/FVC ratio decreased [Unknown]
  - Dry skin [Unknown]
  - Condition aggravated [Unknown]
  - Product dose omission issue [Unknown]

NARRATIVE: CASE EVENT DATE: 20190101
